FAERS Safety Report 5011204-1 (Version None)
Quarter: 2006Q2

REPORT INFORMATION
  Report Type: 
  Country: None (occurrence: None)
  Receive Date: 20060523
  Receipt Date: 20060523
  Transmission Date: 20061013
  Serious: Yes (Hospitalization)
  Sender: FDA-Public Use
  Company Number: None

PATIENT
  Age: 58 Year
  Sex: Male
  Weight: 50.8029 kg

DRUGS (2)
  1. OXANDROLONE [Suspect]
     Indication: LUNG NEOPLASM MALIGNANT
     Dosage: 10 MG BID PO
     Route: 048
     Dates: start: 20060502, end: 20060522
  2. OXANDROLONE [Suspect]
     Indication: WEIGHT DECREASED
     Dosage: 10 MG BID PO
     Route: 048
     Dates: start: 20060502, end: 20060522

REACTIONS (3)
  - ABDOMINAL PAIN [None]
  - BILIARY DILATATION [None]
  - GALLBLADDER DISORDER [None]
